FAERS Safety Report 17513927 (Version 2)
Quarter: 2020Q4

REPORT INFORMATION
  Report Type: Spontaneous
  Country: BR (occurrence: BR)
  Receive Date: 20200306
  Receipt Date: 20201012
  Transmission Date: 20210113
  Serious: Yes (Other)
  Sender: FDA-Public Use
  Company Number: BR-ABBVIE-20P-020-3302984-00

PATIENT
  Sex: Female

DRUGS (8)
  1. LAMOTRIGINE. [Concomitant]
     Active Substance: LAMOTRIGINE
     Indication: EPILEPSY
     Dosage: 3 TABLETS; 1 TABLET IN THE MORNING AND 2 TABLETS AT NIGHT; DOSE INCREASED
     Route: 048
     Dates: end: 20200220
  2. LAMOTRIGINE. [Concomitant]
     Active Substance: LAMOTRIGINE
     Route: 048
     Dates: start: 20200220
  3. DIAZEPAM. [Concomitant]
     Active Substance: DIAZEPAM
     Indication: SEIZURE
     Dosage: START DATE: 16 YEARS AGO; TAKES WHENEVER SHE HAS SEQUENTIAL CRISIS; SEE NARRATIVE
     Route: 060
  4. DEPAKOTE [Suspect]
     Active Substance: DIVALPROEX SODIUM
     Route: 048
     Dates: start: 201912, end: 202002
  5. LAMOTRIGINE. [Concomitant]
     Active Substance: LAMOTRIGINE
     Route: 048
  6. PEROLA [Concomitant]
     Indication: MENSTRUAL DISORDER
     Route: 048
  7. DEPAKOTE [Suspect]
     Active Substance: DIVALPROEX SODIUM
     Indication: EPILEPSY
     Dosage: MORNING/NIGHT; START DATE: 8 - 9 YEARS AGO; DAILY DOSE: 2 TABLET
     Route: 048
  8. FRISIUM [Concomitant]
     Active Substance: CLOBAZAM
     Indication: EPILEPSY
     Dosage: 1 TABLET AT NIGHT; TAKEN WITH LAMOTRIGINE AND DEPAKOTE;
     Route: 048

REACTIONS (10)
  - Staring [Unknown]
  - Gastric disorder [Unknown]
  - Fall [Unknown]
  - Wrong product administered [Unknown]
  - Head injury [Unknown]
  - Inappropriate schedule of product administration [Unknown]
  - Off label use [Unknown]
  - Dyskinesia [Unknown]
  - Petit mal epilepsy [Not Recovered/Not Resolved]
  - Seizure [Unknown]
